FAERS Safety Report 21846749 (Version 1)
Quarter: 2023Q1

REPORT INFORMATION
  Report Type: Spontaneous
  Country: CA (occurrence: None)
  Receive Date: 20230111
  Receipt Date: 20230111
  Transmission Date: 20230417
  Serious: Yes (Other)
  Sender: FDA-Public Use
  Company Number: CA-PFIZER INC-202300006044

PATIENT
  Age: 50 Year
  Sex: Female

DRUGS (8)
  1. METHOTREXATE [Suspect]
     Active Substance: METHOTREXATE
     Indication: Psoriatic arthropathy
     Route: 065
     Dates: start: 202008, end: 202206
  2. METHOTREXATE [Suspect]
     Active Substance: METHOTREXATE
     Dosage: 12.5, (DOSE DECREASED TO 12.5)
     Route: 065
     Dates: start: 202206
  3. ABRILADA [Concomitant]
     Active Substance: ADALIMUMAB-AFZB
     Indication: Psoriatic arthropathy
     Route: 058
  4. DEXILANT [Concomitant]
     Active Substance: DEXLANSOPRAZOLE
     Route: 065
  5. FOLIC ACID [Concomitant]
     Active Substance: FOLIC ACID
     Route: 065
  6. NAPROXEN [Concomitant]
     Active Substance: NAPROXEN
     Route: 065
  7. RAMIPRIL [Concomitant]
     Active Substance: RAMIPRIL
     Route: 065
  8. SULFASALAZINE [Concomitant]
     Active Substance: SULFASALAZINE
     Route: 065
     Dates: start: 202009

REACTIONS (2)
  - Psoriatic arthropathy [Unknown]
  - Alopecia [Unknown]

NARRATIVE: CASE EVENT DATE: 20220601
